FAERS Safety Report 5720435-4 (Version None)
Quarter: 2008Q2

REPORT INFORMATION
  Report Type: 
  Country: None (occurrence: None)
  Receive Date: 20080428
  Receipt Date: 20080418
  Transmission Date: 20081010
  Serious: Yes (Other)
  Sender: FDA-Public Use
  Company Number: DE-ABBOTT-08P-062-0448614-00

PATIENT
  Sex: Male

DRUGS (2)
  1. HUMIRA [Suspect]
     Indication: PSORIATIC ARTHROPATHY
     Route: 058
     Dates: start: 20071201, end: 20080227
  2. RAMIPRIL [Concomitant]
     Indication: HYPERTENSION

REACTIONS (5)
  - DYSPNOEA [None]
  - IMPAIRED HEALING [None]
  - PNEUMONIA [None]
  - TOOTHACHE [None]
  - WISDOM TEETH REMOVAL [None]
